FAERS Safety Report 15582696 (Version 2)
Quarter: 2018Q4

REPORT INFORMATION
  Report Type: Spontaneous
  Country: FR (occurrence: FR)
  Receive Date: 20181105
  Receipt Date: 20181112
  Transmission Date: 20190205
  Serious: Yes (Hospitalization, Other)
  Sender: FDA-Public Use
  Company Number: FR-ASTELLAS-2018US047174

PATIENT
  Age: 42 Year
  Sex: Female

DRUGS (6)
  1. ADVAGRAF [Suspect]
     Active Substance: TACROLIMUS
     Route: 048
     Dates: end: 20180722
  2. LEVOTHYROX [Concomitant]
     Active Substance: LEVOTHYROXINE
     Indication: PRODUCT USED FOR UNKNOWN INDICATION
     Dosage: UNK UNK, UNKNOWN FREQ.
     Route: 065
  3. CELLCEPT [Concomitant]
     Active Substance: MYCOPHENOLATE MOFETIL\MYCOPHENOLATE MOFETIL HYDROCHLORIDE
     Indication: PRODUCT USED FOR UNKNOWN INDICATION
     Dosage: 750 MG, TWICE DAILY (MORNING AND THE EVENING)
     Route: 065
  4. ADVAGRAF [Suspect]
     Active Substance: TACROLIMUS
     Indication: RENAL TRANSPLANT
     Dosage: UNK UNK, UNKNOWN FREQ.
     Route: 048
  5. ADVAGRAF [Suspect]
     Active Substance: TACROLIMUS
     Route: 048
     Dates: start: 20180723, end: 20181031
  6. PLAVIX [Concomitant]
     Active Substance: CLOPIDOGREL BISULFATE
     Indication: PRODUCT USED FOR UNKNOWN INDICATION
     Dosage: UNK UNK, UNKNOWN FREQ.
     Route: 065

REACTIONS (10)
  - Cerebral venous thrombosis [Recovered/Resolved with Sequelae]
  - Disorientation [Unknown]
  - Petit mal epilepsy [Unknown]
  - Vertigo [Unknown]
  - Toxoplasmosis [Recovered/Resolved with Sequelae]
  - Dysphagia [Not Recovered/Not Resolved]
  - Cataract [Unknown]
  - Overdose [Unknown]
  - Epilepsy [Unknown]
  - Vomiting [Unknown]

NARRATIVE: CASE EVENT DATE: 201504
